FAERS Safety Report 19477405 (Version 1)
Quarter: 2021Q2

REPORT INFORMATION
  Report Type: Spontaneous
  Country: US (occurrence: US)
  Receive Date: 20210630
  Receipt Date: 20210630
  Transmission Date: 20210717
  Serious: Yes (Life-Threatening, Other)
  Sender: FDA-Public Use
  Company Number: None

PATIENT
  Age: 40 Year
  Sex: Female

DRUGS (2)
  1. LISINOPRIL. [Suspect]
     Active Substance: LISINOPRIL
     Indication: HYPERTENSION
     Dates: start: 20210408, end: 20210415
  2. AMLODOPINE [Concomitant]
     Active Substance: AMLODIPINE BESYLATE

REACTIONS (7)
  - Nausea [None]
  - Feeling abnormal [None]
  - Rash pruritic [None]
  - Loss of consciousness [None]
  - Dizziness [None]
  - Vomiting [None]
  - Road traffic accident [None]

NARRATIVE: CASE EVENT DATE: 20210414
